FAERS Safety Report 9433799 (Version 1)
Quarter: 2013Q3

REPORT INFORMATION
  Report Type: Spontaneous
  Country: US (occurrence: US)
  Receive Date: 20130731
  Receipt Date: 20130731
  Transmission Date: 20140515
  Serious: Yes (Hospitalization, Other)
  Sender: FDA-Public Use
  Company Number: PHEH2013US015930

PATIENT
  Sex: Female

DRUGS (5)
  1. VALSARTAN [Suspect]
     Dosage: 160 MG
  2. ESTRADIOL [Suspect]
  3. ATENOLOL [Suspect]
     Dosage: 50 MG, BID
  4. XANAX [Concomitant]
     Dosage: 1 MG, BID
  5. TENORMIN [Concomitant]

REACTIONS (13)
  - Transient ischaemic attack [Unknown]
  - VIIth nerve paralysis [Unknown]
  - Paraesthesia [Unknown]
  - Dysarthria [Unknown]
  - Drooling [Unknown]
  - Dysphagia [Unknown]
  - Extrasystoles [Unknown]
  - Dyspnoea [Unknown]
  - Blood pressure increased [Unknown]
  - Choking [Unknown]
  - Cough [Unknown]
  - Drug dispensing error [Unknown]
  - Drug ineffective [Unknown]
